FAERS Safety Report 6176217-5 (Version None)
Quarter: 2009Q2

REPORT INFORMATION
  Report Type: 
  Country: None (occurrence: None)
  Receive Date: 20090501
  Receipt Date: 20090423
  Transmission Date: 20091009
  Serious: Yes (Hospitalization)
  Sender: FDA-Public Use
  Company Number: A0780306A

PATIENT
  Age: 17 Year
  Sex: Male

DRUGS (4)
  1. PAXIL [Suspect]
     Indication: ATTENTION DEFICIT/HYPERACTIVITY DISORDER
     Dosage: 10MG TWICE PER DAY
     Route: 048
     Dates: start: 20080601, end: 20080901
  2. VYVANSE [Suspect]
     Indication: ATTENTION DEFICIT/HYPERACTIVITY DISORDER
     Dosage: 50MG PER DAY
     Route: 048
     Dates: start: 20080101, end: 20080901
  3. CLARITIN [Concomitant]
  4. ALBUTEROL [Concomitant]

REACTIONS (7)
  - CHEST PAIN [None]
  - DEPRESSION [None]
  - HEART RATE IRREGULAR [None]
  - HIGH DENSITY LIPOPROTEIN DECREASED [None]
  - SUICIDAL IDEATION [None]
  - TREMOR [None]
  - WEIGHT DECREASED [None]
